FAERS Safety Report 20177464 (Version 3)
Quarter: 2022Q1

REPORT INFORMATION
  Report Type: Report from Study
  Country: US (occurrence: US)
  Receive Date: 20211213
  Receipt Date: 20220120
  Transmission Date: 20220423
  Serious: Yes (Other)
  Sender: FDA-Public Use
  Company Number: US-CELGENE-USA-20211201459

PATIENT
  Age: 74 Year
  Sex: Male
  Weight: 88.984 kg

DRUGS (62)
  1. INVESTIGATIONAL PRODUCT [Suspect]
     Active Substance: INVESTIGATIONAL PRODUCT
     Indication: Plasma cell myeloma
     Dosage: 458.7 X10^6 CAR+T CELLS
     Route: 041
     Dates: start: 20200803, end: 20200803
  2. CYCLOPHOSPHAMIDE [Suspect]
     Active Substance: CYCLOPHOSPHAMIDE
     Indication: Plasma cell myeloma
     Dosage: 300 MILLIGRAM/SQ. METER
     Route: 041
     Dates: start: 20200729, end: 20200731
  3. CYCLOPHOSPHAMIDE [Suspect]
     Active Substance: CYCLOPHOSPHAMIDE
     Route: 065
     Dates: start: 20151219
  4. FLUDARABINE [Suspect]
     Active Substance: FLUDARABINE PHOSPHATE
     Indication: Plasma cell myeloma
     Dosage: 24 MILLIGRAM/SQ. METER
     Route: 041
     Dates: start: 20200729, end: 20200731
  5. POMALIDOMIDE [Suspect]
     Active Substance: POMALIDOMIDE
     Indication: Plasma cell myeloma
     Dosage: 4 MILLIGRAM
     Route: 048
     Dates: start: 20191217, end: 20200105
  6. POMALIDOMIDE [Suspect]
     Active Substance: POMALIDOMIDE
     Dosage: 3 MILLIGRAM
     Route: 048
     Dates: start: 20200128, end: 20200225
  7. POMALIDOMIDE [Suspect]
     Active Substance: POMALIDOMIDE
     Dosage: 2 MILLIGRAM
     Route: 048
     Dates: start: 20200225, end: 20200312
  8. POMALIDOMIDE [Suspect]
     Active Substance: POMALIDOMIDE
     Dosage: 1 MILLIGRAM
     Route: 048
     Dates: start: 20200324
  9. DARATUMUMAB [Suspect]
     Active Substance: DARATUMUMAB
     Indication: Plasma cell myeloma
     Route: 065
     Dates: start: 20180605, end: 20191114
  10. DARATUMUMAB [Suspect]
     Active Substance: DARATUMUMAB
     Route: 041
     Dates: start: 20191217, end: 20200602
  11. DEXAMETHASONE [Suspect]
     Active Substance: DEXAMETHASONE
     Indication: Plasma cell myeloma
     Route: 065
     Dates: start: 20151219
  12. DEXAMETHASONE [Suspect]
     Active Substance: DEXAMETHASONE
     Dosage: 4 CYCLES
     Route: 065
     Dates: start: 20160112, end: 20160304
  13. DEXAMETHASONE [Suspect]
     Active Substance: DEXAMETHASONE
     Route: 065
     Dates: start: 20180605, end: 20191114
  14. DEXAMETHASONE [Suspect]
     Active Substance: DEXAMETHASONE
     Dosage: 5 TABLET
     Route: 048
     Dates: start: 20191217, end: 20200602
  15. DEXAMETHASONE [Suspect]
     Active Substance: DEXAMETHASONE
     Route: 065
     Dates: start: 20200702, end: 20200709
  16. ACETAMINOPHEN [Concomitant]
     Active Substance: ACETAMINOPHEN
     Indication: Pain
     Dosage: 2600 MILLIGRAM
     Route: 048
     Dates: start: 20210609
  17. AMLODIPINE [Concomitant]
     Active Substance: AMLODIPINE BESYLATE
     Indication: Product used for unknown indication
     Dosage: 10 MILLIGRAM
     Route: 048
  18. AMMONIUM LACTATE [Concomitant]
     Active Substance: AMMONIUM LACTATE
     Indication: Dry skin
     Dosage: APPLY TO FEET DAILY AS DIRECTED
     Route: 061
     Dates: start: 20181207
  19. AMMONIUM LACTATE [Concomitant]
     Active Substance: AMMONIUM LACTATE
     Route: 061
     Dates: start: 20210909
  20. ARTIFICAL TEARS [Concomitant]
     Active Substance: GLYCERIN\HYPROMELLOSE 2910 (15 MPA.S)\POLYETHYLENE GLYCOL 400\PROPYLENE GLYCOL
     Indication: Dry eye
     Dosage: 4 DROPS
     Route: 047
     Dates: start: 20190822
  21. ASCORBIC ACID [Concomitant]
     Active Substance: ASCORBIC ACID
     Indication: Supplementation therapy
     Dosage: 500 MILLIGRAM
     Route: 048
     Dates: start: 20200729
  22. ASCORBIC ACID [Concomitant]
     Active Substance: ASCORBIC ACID
     Dosage: 2 TABLET
     Route: 048
     Dates: start: 20200121
  23. ASPIRIN [Concomitant]
     Active Substance: ASPIRIN
     Indication: Thrombosis prophylaxis
     Dosage: 81 MILLIGRAM
     Route: 048
     Dates: start: 20210504
  24. ATORVASTATIN [Concomitant]
     Active Substance: ATORVASTATIN
     Indication: Hyperlipidaemia
     Dosage: 1 TABLESPOON
     Route: 048
     Dates: start: 20191121
  25. ATORVASTATIN [Concomitant]
     Active Substance: ATORVASTATIN
     Dosage: 40 MILLIGRAM
     Route: 048
     Dates: start: 20210923
  26. ATOVAQUONE [Concomitant]
     Active Substance: ATOVAQUONE
     Indication: Antifungal prophylaxis
     Dosage: 10 MILLILITER; (750MG/5ML)
     Route: 048
     Dates: start: 20200121
  27. BENZONATATE [Concomitant]
     Active Substance: BENZONATATE
     Indication: Cough
     Dosage: 300 MILLIGRAM
     Route: 048
     Dates: start: 20210923
  28. Calcium-cholecalciferol D3 [Concomitant]
     Indication: Mineral supplementation
     Dosage: 600 MILLIGRAM (1,500 MG)-200 UNIT TAB
     Route: 048
     Dates: start: 20190705
  29. Calcium-cholecalciferol D3 [Concomitant]
     Dosage: 2 TABLET; 600 MG CALCIUM-400 UNIT TAB
     Route: 048
     Dates: start: 20210923
  30. CHLORTHALIDONE [Concomitant]
     Active Substance: CHLORTHALIDONE
     Indication: Oedema
     Dosage: 25 MILLIGRAM
     Route: 048
     Dates: start: 201905
  31. CLOTRIMAZOLE AND BETAMETHASONE DIPROPIONATE [Concomitant]
     Active Substance: BETAMETHASONE\BETAMETHASONE DIPROPIONATE\CLOTRIMAZOLE
     Indication: Product used for unknown indication
     Dosage: 1-0.05%
     Route: 061
     Dates: start: 20201023
  32. CYANOCOBALAMIN [Concomitant]
     Active Substance: CYANOCOBALAMIN
     Indication: Product used for unknown indication
     Dosage: 1 TABLET
     Route: 048
     Dates: start: 20210317
  33. EMPAGLIFLOZIN [Concomitant]
     Active Substance: EMPAGLIFLOZIN
     Indication: Type 2 diabetes mellitus
     Dosage: 1 TABLET
     Route: 048
     Dates: start: 20200103
  34. FERROUS SULFATE [Concomitant]
     Active Substance: FERROUS SULFATE
     Indication: Product used for unknown indication
     Dosage: 325 MILLIGRAM (65 MG IRON)
     Route: 048
     Dates: start: 20211008
  35. FINASTERIDE [Concomitant]
     Active Substance: FINASTERIDE
     Indication: Benign prostatic hyperplasia
     Dosage: 1 TABLET
     Route: 048
     Dates: start: 20201023
  36. GABAPENTIN [Concomitant]
     Active Substance: GABAPENTIN
     Indication: Neuropathy peripheral
     Dosage: 2 CAPSULE
     Route: 048
     Dates: start: 20190820
  37. GABAPENTIN [Concomitant]
     Active Substance: GABAPENTIN
     Dosage: 2 CAPSULE
     Route: 048
     Dates: start: 20210609
  38. LIDOCAINE [Concomitant]
     Active Substance: LIDOCAINE
     Indication: Product used for unknown indication
     Dosage: 1 PATCH
     Route: 061
     Dates: start: 20211124
  39. LISINOPRIL [Concomitant]
     Active Substance: LISINOPRIL
     Indication: Hypertension
     Dosage: 1 TABLET
     Route: 048
     Dates: start: 20200529
  40. LISINOPRIL [Concomitant]
     Active Substance: LISINOPRIL
     Dosage: 1 TABLET
     Route: 048
     Dates: start: 20211118
  41. LOPERAMIDE [Concomitant]
     Active Substance: LOPERAMIDE
     Indication: Diarrhoea
     Dosage: 4 CAPSULE
     Route: 048
     Dates: start: 20210609
  42. LATANOPROST [Concomitant]
     Active Substance: LATANOPROST
     Indication: Cataract
     Dosage: 1 DROPS
     Route: 047
     Dates: start: 20190822
  43. LATANOPROST [Concomitant]
     Active Substance: LATANOPROST
     Dosage: 1 DROPS
     Route: 047
     Dates: start: 20210624
  44. LORATADINE [Concomitant]
     Active Substance: LORATADINE
     Indication: Product used for unknown indication
     Dosage: 1 TABLET
     Route: 048
     Dates: start: 20210609
  45. MIRALAX [Concomitant]
     Active Substance: POLYETHYLENE GLYCOL 3350
     Indication: Constipation
     Dosage: 17 GRAM (1 PACKET)
     Route: 065
     Dates: start: 20190519
  46. VITAMINS [Concomitant]
     Active Substance: VITAMINS
     Indication: Supplementation therapy
     Dosage: 1 TABLET
     Route: 048
     Dates: start: 20200121
  47. VITAMINS [Concomitant]
     Active Substance: VITAMINS
     Dosage: 1 TABLET
     Route: 048
     Dates: start: 20210923
  48. OXYBUTYNIN [Concomitant]
     Active Substance: OXYBUTYNIN
     Indication: Benign prostatic hyperplasia
     Dosage: 1 TABLET
     Route: 048
     Dates: start: 20201023
  49. OXYBUTYNIN [Concomitant]
     Active Substance: OXYBUTYNIN
     Dosage: 1 TABLET
     Route: 048
     Dates: start: 20210325
  50. PANTOPRAZOLE [Concomitant]
     Active Substance: PANTOPRAZOLE
     Indication: Gastrooesophageal reflux disease
     Dosage: 2 TABLET
     Route: 048
     Dates: start: 20190517
  51. PANTOPRAZOLE [Concomitant]
     Active Substance: PANTOPRAZOLE
     Dosage: 1 TABLET
     Route: 048
     Dates: start: 20211118
  52. TAMSULOSIN [Concomitant]
     Active Substance: TAMSULOSIN
     Indication: Benign prostatic hyperplasia
     Dosage: 1 CAPSULE
     Route: 048
     Dates: start: 20201023
  53. TAMSULOSIN [Concomitant]
     Active Substance: TAMSULOSIN
     Dosage: 1 CAPSULE
     Route: 048
     Dates: start: 20210923
  54. TRAMADOL [Concomitant]
     Active Substance: TRAMADOL
     Indication: Pain
     Dosage: 2 TABLET
     Route: 048
     Dates: start: 20191018
  55. TRAMADOL [Concomitant]
     Active Substance: TRAMADOL
     Dosage: 150 MILLIGRAM
     Route: 048
     Dates: start: 20210317
  56. VALACYCLOVIR [Concomitant]
     Active Substance: VALACYCLOVIR HYDROCHLORIDE
     Indication: Antiviral prophylaxis
     Dosage: 1 TABLET
     Route: 048
     Dates: start: 20190723
  57. VALACYCLOVIR [Concomitant]
     Active Substance: VALACYCLOVIR HYDROCHLORIDE
     Dosage: 1 TABLET
     Route: 048
     Dates: start: 20210609
  58. VITAMIN D3 [Concomitant]
     Active Substance: CHOLECALCIFEROL
     Indication: Vitamin supplementation
     Dosage: 2000 UNKNOWN
     Route: 048
     Dates: start: 201902
  59. VITAMIN D3 [Concomitant]
     Active Substance: CHOLECALCIFEROL
     Dosage: 1000 UNIT
     Route: 048
     Dates: start: 20211118
  60. ZINC SULFATE [Concomitant]
     Active Substance: ZINC SULFATE
     Indication: Supplementation therapy
     Dosage: 220 (50) MG
     Route: 048
     Dates: start: 20200121
  61. ZINC SULFATE [Concomitant]
     Active Substance: ZINC SULFATE
     Dosage: 220 MILLIGRAM
     Route: 048
  62. TRIAMCINOLONE [Concomitant]
     Active Substance: TRIAMCINOLONE
     Indication: Product used for unknown indication
     Dosage: FOR 2-4 WEEKS
     Route: 065

REACTIONS (1)
  - Hepatitis B [Not Recovered/Not Resolved]

NARRATIVE: CASE EVENT DATE: 20211124
